FAERS Safety Report 20633212 (Version 1)
Quarter: 2022Q1

REPORT INFORMATION
  Report Type: Spontaneous
  Country: GB (occurrence: None)
  Receive Date: 20220324
  Receipt Date: 20220324
  Transmission Date: 20220424
  Serious: Yes (Life-Threatening, Hospitalization, Other)
  Sender: FDA-Public Use
  Company Number: 2021A750354

PATIENT
  Age: 20571 Day
  Sex: Female

DRUGS (7)
  1. TICAGRELOR [Suspect]
     Active Substance: TICAGRELOR
     Indication: Myocardial infarction
     Route: 048
     Dates: start: 20210702, end: 20211015
  2. ASPIRIN [Suspect]
     Active Substance: ASPIRIN
     Indication: Myocardial infarction
     Route: 048
     Dates: start: 20210702
  3. DAPAGLIFLOZIN [Suspect]
     Active Substance: DAPAGLIFLOZIN
     Indication: Acute myocardial infarction
     Route: 048
     Dates: start: 20210701
  4. RAMIPRIL [Concomitant]
     Active Substance: RAMIPRIL
     Indication: Hypotension
     Route: 048
     Dates: start: 20210702, end: 20210925
  5. ATORVASTATIN [Concomitant]
     Active Substance: ATORVASTATIN
     Indication: Liver function test abnormal
     Route: 048
     Dates: start: 20210702, end: 20210925
  6. BISOPROLOL [Concomitant]
     Active Substance: BISOPROLOL
     Indication: Myocardial infarction
     Route: 048
     Dates: start: 20210702
  7. ENOXAPARIN [Concomitant]
     Active Substance: ENOXAPARIN
     Indication: Myocardial infarction
     Route: 058
     Dates: start: 20210702

REACTIONS (1)
  - Anaemia [Recovered/Resolved with Sequelae]

NARRATIVE: CASE EVENT DATE: 20210925
